FAERS Safety Report 18137217 (Version 3)
Quarter: 2020Q4

REPORT INFORMATION
  Report Type: Report from Study
  Country: US (occurrence: US)
  Receive Date: 20200811
  Receipt Date: 20201107
  Transmission Date: 20210113
  Serious: Yes (Other)
  Sender: FDA-Public Use
  Company Number: NVSC2020US222580

PATIENT
  Age: 63 Year
  Sex: Male

DRUGS (2)
  1. ZORTRESS [Suspect]
     Active Substance: EVEROLIMUS
     Dosage: 1 MG, Q12H
     Route: 048
     Dates: start: 20201020
  2. ZORTRESS [Suspect]
     Active Substance: EVEROLIMUS
     Indication: PRODUCT USED FOR UNKNOWN INDICATION
     Dosage: 1 MG, Q12H
     Route: 048
     Dates: start: 20200904

REACTIONS (8)
  - Balance disorder [Recovered/Resolved]
  - Amnesia [Unknown]
  - Headache [Recovered/Resolved]
  - Oral pain [Recovered/Resolved]
  - Pruritus [Unknown]
  - Dysphagia [Recovered/Resolved]
  - Abdominal pain upper [Recovered/Resolved]
  - Anaesthesia oral [Recovered/Resolved]

NARRATIVE: CASE EVENT DATE: 20201023
